FAERS Safety Report 23090488 (Version 12)
Quarter: 2025Q1

REPORT INFORMATION
  Report Type: Spontaneous
  Country: US (occurrence: US)
  Receive Date: 20231020
  Receipt Date: 20250220
  Transmission Date: 20250409
  Serious: Yes (Hospitalization)
  Sender: PFIZER
  Company Number: US-PFIZER INC-PV202300172417

PATIENT
  Age: 61 Year
  Sex: Female
  Weight: 67.574 kg

DRUGS (32)
  1. IBRANCE [Suspect]
     Active Substance: PALBOCICLIB
     Indication: Breast cancer female
     Route: 048
     Dates: start: 20231005
  2. IBRANCE [Suspect]
     Active Substance: PALBOCICLIB
     Route: 048
     Dates: start: 20231012, end: 20241118
  3. IBRANCE [Suspect]
     Active Substance: PALBOCICLIB
     Route: 048
     Dates: start: 20231012
  4. AMITRIPTYLINE [Concomitant]
     Active Substance: AMITRIPTYLINE
  5. ANASTROZOLE [Concomitant]
     Active Substance: ANASTROZOLE
     Indication: Breast cancer metastatic
     Dosage: 1 MG, DAILY
  6. BISACODYL [Concomitant]
     Active Substance: BISACODYL
  7. CANNABIDIOL [Concomitant]
     Active Substance: CANNABIDIOL
  8. CLINDAMYCIN [Concomitant]
     Active Substance: CLINDAMYCIN
  9. DEXLANSOPRAZOLE [Concomitant]
     Active Substance: DEXLANSOPRAZOLE
  10. DICLOFENAC [Concomitant]
     Active Substance: DICLOFENAC
  11. DULOXETINE [Concomitant]
     Active Substance: DULOXETINE
  12. EUCERIN [Concomitant]
     Active Substance: ENSULIZOLE\EUCERIN\OCTINOXATE\OCTISALATE\TITANIUM DIOXIDE\ZINC OXIDE
  13. EXEMESTANE [Concomitant]
     Active Substance: EXEMESTANE
  14. FERROUS SULFATE [Concomitant]
     Active Substance: FERROUS SULFATE
  15. FLUTICASONE [Concomitant]
     Active Substance: FLUTICASONE
  16. GABAPENTIN [Concomitant]
     Active Substance: GABAPENTIN
  17. LANTUS SOLOSTAR [Concomitant]
     Active Substance: INSULIN GLARGINE
  18. LEVOFLOXACIN [Concomitant]
     Active Substance: LEVOFLOXACIN
  19. LIDOCAINE [Concomitant]
     Active Substance: LIDOCAINE
  20. NAPROXEN [Concomitant]
     Active Substance: NAPROXEN
  21. NOVOLOG [Concomitant]
     Active Substance: INSULIN ASPART
  22. OLANZAPINE [Concomitant]
     Active Substance: OLANZAPINE
  23. ONDANSETRON [Concomitant]
     Active Substance: ONDANSETRON
  24. OXYCODONE [Concomitant]
     Active Substance: OXYCODONE
  25. PANTOPRAZOLE [Concomitant]
     Active Substance: PANTOPRAZOLE
  26. PERCOCET [Concomitant]
     Active Substance: ACETAMINOPHEN\OXYCODONE HYDROCHLORIDE
  27. PROAIR HFA [Concomitant]
     Active Substance: ALBUTEROL SULFATE
  28. SENNOSIDES [Concomitant]
     Active Substance: SENNOSIDES
  29. TOPIRAMATE [Concomitant]
     Active Substance: TOPIRAMATE
  30. TRAZODONE [Concomitant]
     Active Substance: TRAZODONE HYDROCHLORIDE
  31. TYLENOL [Concomitant]
     Active Substance: ACETAMINOPHEN
  32. EUCERIN ANTI REDNESS [Concomitant]

REACTIONS (8)
  - Influenza [Recovered/Resolved]
  - White blood cell count decreased [Recovered/Resolved]
  - Arthralgia [Recovering/Resolving]
  - Diarrhoea [Recovered/Resolved]
  - Hyperhidrosis [Recovering/Resolving]
  - Peripheral swelling [Recovered/Resolved with Sequelae]
  - Fatigue [Recovered/Resolved]
  - Pain [Unknown]

NARRATIVE: CASE EVENT DATE: 20230101
